FAERS Safety Report 21495546 (Version 1)
Quarter: 2022Q4

REPORT INFORMATION
  Report Type: Spontaneous
  Country: US (occurrence: US)
  Receive Date: 20221022
  Receipt Date: 20221022
  Transmission Date: 20230112
  Serious: No
  Sender: FDA-Public Use
  Company Number: US-UNITED THERAPEUTICS-UNT-2022-024200

PATIENT
  Sex: Male
  Weight: 71.655 kg

DRUGS (2)
  1. REMODULIN [Suspect]
     Active Substance: TREPROSTINIL
     Indication: Pulmonary arterial hypertension
     Dosage: UNK, CONTINUING
     Route: 058
     Dates: start: 20220909
  2. REMODULIN [Suspect]
     Active Substance: TREPROSTINIL
     Dosage: 0.025 ?G/KG (PHARMACY PRE-FILLED WITH 2.4ML PER CASSETTE AT PUMP RATE OF 22 MCL/HOUR), CONTINUING
     Route: 058
     Dates: start: 2022

REACTIONS (7)
  - Vomiting [Unknown]
  - Headache [Unknown]
  - Nausea [Unknown]
  - Overdose [Unknown]
  - Device defective [Unknown]
  - Device defective [Unknown]
  - Device defective [Unknown]

NARRATIVE: CASE EVENT DATE: 20220101
